FAERS Safety Report 7647784-7 (Version None)
Quarter: 2011Q3

REPORT INFORMATION
  Report Type: 
  Country: None (occurrence: None)
  Receive Date: 20110801
  Receipt Date: 20110719
  Transmission Date: 20111222
  Serious: Yes (Other)
  Sender: FDA-Public Use
  Company Number: DE-ROCHE-793237

PATIENT
  Sex: Female

DRUGS (2)
  1. HERCEPTIN [Suspect]
     Indication: BREAST CANCER
     Dosage: DOSE, ROUTE AND THERAPY WAS NOT REPORTED
     Route: 065
  2. AVASTIN [Suspect]
     Indication: BREAST CANCER
     Dosage: DOSE, ROUTE AND THERAPY WAS NOT REPORTED
     Route: 065

REACTIONS (2)
  - ENCEPHALOPATHY [None]
  - HYDROCEPHALUS [None]
